FAERS Safety Report 24306325 (Version 1)
Quarter: 2024Q3

REPORT INFORMATION
  Report Type: Spontaneous
  Country: CN (occurrence: CN)
  Receive Date: 20240911
  Receipt Date: 20240911
  Transmission Date: 20241016
  Serious: Yes (Life-Threatening, Hospitalization)
  Sender: ACCORD
  Company Number: CN-MLMSERVICE-20240816-PI160717-00306-1

PATIENT
  Age: 2 Year
  Sex: Male
  Weight: 16.6 kg

DRUGS (8)
  1. TACROLIMUS [Suspect]
     Active Substance: TACROLIMUS
     Indication: Immunosuppressant drug therapy
     Dosage: 0.5 AND 0.25 MG AT MORNING AND EVENING
     Route: 048
     Dates: start: 202204, end: 20220425
  2. HYDROCHLOROTHIAZIDE [Concomitant]
     Active Substance: HYDROCHLOROTHIAZIDE
     Indication: Diuretic therapy
     Dates: start: 2022
  3. ALBUMIN HUMAN [Concomitant]
     Active Substance: ALBUMIN HUMAN
     Indication: Diuretic therapy
     Dates: start: 2022
  4. SPIRONOLACTONE [Concomitant]
     Active Substance: SPIRONOLACTONE
     Indication: Diuretic therapy
     Dates: start: 2022
  5. FUROSEMIDE [Concomitant]
     Active Substance: FUROSEMIDE
     Indication: Diuretic therapy
     Dates: start: 2022
  6. PREDNISOLONE [Concomitant]
     Active Substance: PREDNISOLONE
     Dates: start: 20220303
  7. TACROLIMUS [Suspect]
     Active Substance: TACROLIMUS
     Indication: Immunosuppressant drug therapy
     Dosage: 0.5 AND 0.5 MG AT MORNING AND EVENING
     Route: 048
     Dates: start: 20220425, end: 2022
  8. TACROLIMUS [Suspect]
     Active Substance: TACROLIMUS
     Indication: Immunosuppressant drug therapy
     Dosage: 0.75 MG AND 0.5 MG IN THE MORNING AND EVENING
     Route: 048
     Dates: start: 20220501

REACTIONS (5)
  - Unresponsive to stimuli [Recovered/Resolved]
  - Cerebral haemorrhage [Recovering/Resolving]
  - Hypertensive emergency [Recovered/Resolved]
  - Posterior reversible encephalopathy syndrome [Recovering/Resolving]
  - Status epilepticus [Recovered/Resolved]

NARRATIVE: CASE EVENT DATE: 20220501
